FAERS Safety Report 6504422-4 (Version None)
Quarter: 2009Q4

REPORT INFORMATION
  Report Type: 
  Country: None (occurrence: None)
  Receive Date: 20091214
  Receipt Date: 20091124
  Transmission Date: 20100525
  Serious: Yes (Other)
  Sender: FDA-Public Use
  Company Number: B0610719A

PATIENT
  Age: 56 Year
  Sex: Male

DRUGS (9)
  1. BUSULPHAN (FORMULATION UNKNOWN) (GENERIC) (BUSULPHAN) [Suspect]
     Indication: COLON CANCER
  2. FLUDARABINE PHOSPHATE [Suspect]
     Indication: COLON CANCER
  3. STEM CELL TRANSPLANT [Concomitant]
  4. CYCLOSPORINE [Concomitant]
  5. METHOTREXATE [Concomitant]
  6. TACROLIMUS [Concomitant]
  7. CO-TRIMOXAZOLE [Concomitant]
  8. FLUCONAZOLE [Concomitant]
  9. LEVOFLOXACIN [Concomitant]

REACTIONS (2)
  - ADENOVIRAL HAEMORRHAGIC CYSTITIS [None]
  - GRAFT VERSUS HOST DISEASE [None]
